FAERS Safety Report 12487645 (Version 1)
Quarter: 2016Q2

REPORT INFORMATION
  Report Type: Spontaneous
  Country: US (occurrence: US)
  Receive Date: 20160622
  Receipt Date: 20160622
  Transmission Date: 20160815
  Serious: Yes (Other)
  Sender: FDA-Public Use
  Company Number: US-AMGEN-USASP2016078904

PATIENT
  Age: 76 Year
  Sex: Male

DRUGS (1)
  1. PROCRIT [Suspect]
     Active Substance: ERYTHROPOIETIN
     Indication: ANAEMIA
     Dosage: UNK
     Route: 065
     Dates: start: 201606

REACTIONS (2)
  - Off label use [Not Recovered/Not Resolved]
  - Myeloproliferative neoplasm [Unknown]

NARRATIVE: CASE EVENT DATE: 201606
